FAERS Safety Report 5391323-0 (Version None)
Quarter: 2007Q3

REPORT INFORMATION
  Report Type: 
  Country: None (occurrence: None)
  Receive Date: 20070719
  Receipt Date: 20070710
  Transmission Date: 20080115
  Serious: Yes (Other)
  Sender: FDA-Public Use
  Company Number: B0478562A

PATIENT
  Age: 67 Year
  Sex: Female

DRUGS (4)
  1. QVAR 40 [Suspect]
     Indication: ASTHMA
     Dosage: 2PUFF TWICE PER DAY
  2. SALMETEROL [Suspect]
     Indication: DRUG USE FOR UNKNOWN INDICATION
     Dosage: 2PUFF TWICE PER DAY
  3. VENTOLIN [Concomitant]
  4. SERETIDE [Concomitant]
     Dosage: 250MCG VARIABLE DOSE

REACTIONS (1)
  - ASTHMA [None]
